FAERS Safety Report 16217875 (Version 2)
Quarter: 2019Q2

REPORT INFORMATION
  Report Type: Report from Study
  Country: ZA (occurrence: ZA)
  Receive Date: 20190419
  Receipt Date: 20190527
  Transmission Date: 20190711
  Serious: Yes (Hospitalization)
  Sender: FDA-Public Use
  Company Number: ZA-SA-2019SA102739

PATIENT
  Age: 60 Year
  Sex: Female

DRUGS (9)
  1. APIDRA [Suspect]
     Active Substance: INSULIN GLULISINE
     Dosage: 4 U, TID
     Dates: start: 20190411
  2. APIDRA [Suspect]
     Active Substance: INSULIN GLULISINE
     Dosage: 12 U, TID
     Route: 058
     Dates: start: 20190411
  3. ZARTAN CO [Concomitant]
     Active Substance: HYDROCHLOROTHIAZIDE\LOSARTAN POTASSIUM
     Dosage: 100 MG, UNK
     Route: 065
     Dates: start: 20150411
  4. INSULIN GLARGINE [Suspect]
     Active Substance: INSULIN GLARGINE
     Dosage: 8 U, HS (AT BEDTIME)
     Dates: start: 20190410
  5. BIGSENS [Concomitant]
     Active Substance: METFORMIN HYDROCHLORIDE
     Dosage: 1000 MG, UNK
     Route: 065
     Dates: start: 20150411
  6. BISOPROLOL CO UNICORN [Concomitant]
     Dosage: 10MG/6.25MG
     Route: 048
     Dates: start: 20190101
  7. INSULIN GLARGINE [Suspect]
     Active Substance: INSULIN GLARGINE
     Dosage: BT-40 UNITS  AND BB-20 UNITS
     Dates: start: 20190410
  8. CILIFT [Concomitant]
     Active Substance: CITALOPRAM HYDROBROMIDE
     Dosage: 20 MG, UNK
     Route: 048
     Dates: start: 20150411
  9. INSULIN GLARGINE [Suspect]
     Active Substance: INSULIN GLARGINE
     Dosage: UNK UNK, BID
     Dates: start: 20190301

REACTIONS (7)
  - Inappropriate schedule of product administration [Unknown]
  - Blood glucose increased [Not Recovered/Not Resolved]
  - Blood pressure increased [Not Recovered/Not Resolved]
  - Malaise [Not Recovered/Not Resolved]
  - Haemoptysis [Not Recovered/Not Resolved]
  - Oesophageal disorder [Not Recovered/Not Resolved]
  - Inappropriate schedule of product administration [Unknown]

NARRATIVE: CASE EVENT DATE: 20190301
